FAERS Safety Report 7502231-0 (Version None)
Quarter: 2011Q2

REPORT INFORMATION
  Report Type: 
  Country: None (occurrence: None)
  Receive Date: 20110525
  Receipt Date: 20110513
  Transmission Date: 20111010
  Serious: Yes (Other)
  Sender: FDA-Public Use
  Company Number: AR-SANOFI-AVENTIS-2011SA018418

PATIENT
  Age: 65 Year
  Sex: Female

DRUGS (13)
  1. LEVOTHYROXINE SODIUM [Concomitant]
  2. FUROSEMIDE [Concomitant]
  3. INSULIN [Concomitant]
     Route: 058
  4. RANITIDINA [Concomitant]
  5. ASPIRIN [Concomitant]
     Route: 048
  6. DRONEDARONE HCL [Suspect]
     Indication: ATRIAL FIBRILLATION
     Route: 048
     Dates: start: 20110322, end: 20110324
  7. ACENOCOUMAROL [Concomitant]
     Dosage: 14 MG WEEKLY
     Route: 048
  8. CLOPIDOGREL [Concomitant]
  9. ENALAPRIL MALEATE [Concomitant]
  10. SIMVASTATIN [Concomitant]
  11. CARVEDILOL [Concomitant]
  12. DIGOXIN [Concomitant]
  13. ESPIRONOLACTONA [Concomitant]

REACTIONS (1)
  - RENAL FAILURE ACUTE [None]
